FAERS Safety Report 4996615-2 (Version None)
Quarter: 2006Q2

REPORT INFORMATION
  Report Type: 
  Country: None (occurrence: None)
  Receive Date: 20060509
  Receipt Date: 20060427
  Transmission Date: 20061013
  Serious: Yes (Death, Life-Threatening)
  Sender: FDA-Public Use
  Company Number: FR-BRISTOL-MYERS SQUIBB COMPANY-13360144

PATIENT
  Age: 80 Year
  Sex: Male

DRUGS (3)
  1. HYDREA [Suspect]
     Indication: ACUTE MYELOID LEUKAEMIA
     Route: 048
     Dates: start: 20050928, end: 20051002
  2. ARACYTINE [Suspect]
     Indication: ACUTE MYELOID LEUKAEMIA
     Dates: start: 20051003, end: 20051119
  3. RAPAMUNE [Suspect]
     Indication: ACUTE MYELOID LEUKAEMIA
     Dates: start: 20051008, end: 20051022

REACTIONS (2)
  - BONE MARROW FAILURE [None]
  - HAEMATEMESIS [None]
